FAERS Safety Report 23775743 (Version 2)
Quarter: 2024Q2

REPORT INFORMATION
  Report Type: Spontaneous
  Country: US (occurrence: US)
  Receive Date: 20240423
  Receipt Date: 20240513
  Transmission Date: 20240716
  Serious: Yes (Other)
  Sender: FDA-Public Use
  Company Number: US-009507513-2404USA009609

PATIENT
  Sex: Female
  Weight: 92 kg

DRUGS (1)
  1. KEYTRUDA [Suspect]
     Active Substance: PEMBROLIZUMAB
     Indication: Lung cancer metastatic
     Dosage: 200 MILLIGRAM, Q3W
     Dates: start: 20240305, end: 202403

REACTIONS (4)
  - Optic neuropathy [Recovering/Resolving]
  - Papilloedema [Recovering/Resolving]
  - Blood glucose increased [Not Recovered/Not Resolved]
  - Rash [Not Recovered/Not Resolved]

NARRATIVE: CASE EVENT DATE: 20240101
